FAERS Safety Report 4325452-7 (Version None)
Quarter: 2004Q1

REPORT INFORMATION
  Report Type: 
  Country: None (occurrence: None)
  Receive Date: 20040329
  Receipt Date: 20040301
  Transmission Date: 20041129
  Serious: Yes (Other)
  Sender: FDA-Public Use
  Company Number: PHEH2004US02527

PATIENT

DRUGS (1)
  1. MIACALCIN [Suspect]
     Dates: start: 20001027

REACTIONS (1)
  - ANOSMIA [None]
